FAERS Safety Report 5313035-1 (Version None)
Quarter: 2007Q2

REPORT INFORMATION
  Report Type: 
  Country: None (occurrence: None)
  Receive Date: 20070430
  Receipt Date: 20070418
  Transmission Date: 20071010
  Serious: Yes (Other)
  Sender: FDA-Public Use
  Company Number: US-PFIZER INC-2007016155

PATIENT
  Sex: Male
  Weight: 97.5 kg

DRUGS (10)
  1. LYRICA [Suspect]
     Indication: PAIN IN EXTREMITY
  2. LYRICA [Suspect]
  3. FLECAINIDE ACETATE [Concomitant]
  4. LOSARTAN POSTASSIUM [Concomitant]
  5. METFORMIN HCL [Concomitant]
  6. OMEPRAZOLE [Concomitant]
  7. DIGOXIN [Concomitant]
  8. WARFARIN SODIUM [Concomitant]
  9. INSULIN [Concomitant]
  10. QUININE [Concomitant]

REACTIONS (2)
  - SURGERY [None]
  - WEIGHT DECREASED [None]
